FAERS Safety Report 5332377-7 (Version None)
Quarter: 2007Q2

REPORT INFORMATION
  Report Type: 
  Country: None (occurrence: None)
  Receive Date: 20070523
  Receipt Date: 20070517
  Transmission Date: 20071010
  Serious: Yes (Hospitalization)
  Sender: FDA-Public Use
  Company Number: B0469684A

PATIENT
  Age: 69 Year
  Sex: Male
  Weight: 66 kg

DRUGS (7)
  1. PLACEBO [Suspect]
     Indication: PROPHYLAXIS OF NAUSEA AND VOMITING
     Route: 042
     Dates: start: 20070425, end: 20070425
  2. PLACEBO [Suspect]
     Route: 048
     Dates: start: 20070425, end: 20070427
  3. DEXAMETHASONE 0.5MG TAB [Suspect]
     Route: 048
     Dates: start: 20070425, end: 20070428
  4. ZOFRAN [Suspect]
     Route: 048
     Dates: start: 20070425, end: 20070425
  5. CLEXANE [Concomitant]
     Indication: COAGULOPATHY
     Dates: start: 20070503
  6. ATROVENT [Concomitant]
     Indication: CHRONIC OBSTRUCTIVE PULMONARY DISEASE
  7. FORMOTEROL FUMARATE [Concomitant]
     Indication: CHRONIC OBSTRUCTIVE PULMONARY DISEASE

REACTIONS (1)
  - EMBOLISM [None]
